FAERS Safety Report 5590911-6 (Version None)
Quarter: 2007Q4

REPORT INFORMATION
  Report Type: 
  Country: None (occurrence: None)
  Receive Date: 20071214
  Receipt Date: 20070430
  Transmission Date: 20080405
  Serious: Yes (Hospitalization)
  Sender: FDA-Public Use
  Company Number: US200704002454

PATIENT
  Age: 45 Year
  Sex: Male
  Weight: 95.2 kg

DRUGS (2)
  1. CIALIS [Suspect]
     Indication: ERECTILE DYSFUNCTION
     Dates: start: 20060901
  2. HYDROCODONE (HYDROCODONE) [Concomitant]

REACTIONS (2)
  - CHEST PAIN [None]
  - VENTRICULAR EXTRASYSTOLES [None]
